FAERS Safety Report 20420724 (Version 1)
Quarter: 2022Q1

REPORT INFORMATION
  Report Type: Spontaneous
  Country: US (occurrence: None)
  Receive Date: 20220202
  Receipt Date: 20220202
  Transmission Date: 20220424
  Serious: Yes (Other)
  Sender: FDA-Public Use
  Company Number: None

PATIENT
  Age: 29 Year
  Sex: Male
  Weight: 87.45 kg

DRUGS (3)
  1. REMDESIVIR [Suspect]
     Active Substance: REMDESIVIR
     Indication: COVID-19
     Dosage: OTHER FREQUENCY : QDX5D;?
     Route: 042
     Dates: start: 20220126, end: 20220129
  2. DEXAMETHASONE [Concomitant]
     Active Substance: DEXAMETHASONE
  3. ACETAMINOPHEN [Concomitant]

REACTIONS (4)
  - Chills [None]
  - Muscle spasms [None]
  - Abdominal pain lower [None]
  - Hepatic enzyme increased [None]

NARRATIVE: CASE EVENT DATE: 20220129
